FAERS Safety Report 24726831 (Version 4)
Quarter: 2025Q1

REPORT INFORMATION
  Report Type: Spontaneous
  Country: US (occurrence: US)
  Receive Date: 20241212
  Receipt Date: 20250117
  Transmission Date: 20250409
  Serious: Yes (Death, Life-Threatening)
  Sender: PFIZER
  Company Number: US-PFIZER INC-PV202400160977

PATIENT
  Age: 5 Day
  Sex: Male
  Weight: 2.5 kg

DRUGS (7)
  1. HEPARIN SODIUM [Suspect]
     Active Substance: HEPARIN SODIUM
     Indication: Aortic surgery
     Dosage: 600 IU, 1X/DAY (ONE TIME DOSE INTRA OP)
     Route: 042
     Dates: start: 20241209, end: 20241209
  2. HEPARIN SODIUM [Suspect]
     Active Substance: HEPARIN SODIUM
     Indication: Pulmonary artery banding
  3. HEPARIN SODIUM [Suspect]
     Active Substance: HEPARIN SODIUM
     Indication: Vascular graft
  4. AMICAR [Concomitant]
     Active Substance: AMINOCAPROIC ACID
     Dosage: 275 MG, 1X/DAY
  5. CEFAZOLIN [Concomitant]
     Active Substance: CEFAZOLIN
     Dosage: 66.13 MG, 1X/DAY
  6. FENTANYL [Concomitant]
     Active Substance: FENTANYL
     Dosage: 10 UG, 1X/DAY
  7. ROSUVASTATIN [Concomitant]
     Active Substance: ROSUVASTATIN
     Dosage: 5 MG, 1X/DAY

REACTIONS (2)
  - Circulatory collapse [Fatal]
  - Hypotension [Fatal]

NARRATIVE: CASE EVENT DATE: 20241209
